FAERS Safety Report 6568819-9 (Version None)
Quarter: 2010Q1

REPORT INFORMATION
  Report Type: 
  Country: None (occurrence: None)
  Receive Date: 20100128
  Receipt Date: 20100119
  Transmission Date: 20100710
  Serious: Yes (Life-Threatening, Other)
  Sender: FDA-Public Use
  Company Number: AUR-APU-2010-00198

PATIENT
  Sex: Female

DRUGS (4)
  1. CEFUROXIME [Suspect]
     Indication: SINUSITIS
     Dosage: 1 TABLET - BID - ORAL
     Route: 048
     Dates: start: 20100118
  2. UNSPECIFIED HEART AND HIGH BLOOD PRESSURE MEDICATIONS [Concomitant]
  3. ASPIRIN [Concomitant]
  4. VITAMIN [Concomitant]

REACTIONS (7)
  - CHOKING [None]
  - DYSPNOEA [None]
  - FOREIGN BODY [None]
  - OROPHARYNGEAL PAIN [None]
  - PRODUCT COATING ISSUE [None]
  - THROAT IRRITATION [None]
  - URINARY INCONTINENCE [None]
